FAERS Safety Report 14525214 (Version 4)
Quarter: 2018Q2

REPORT INFORMATION
  Report Type: Spontaneous
  Country: DE (occurrence: DE)
  Receive Date: 20180213
  Receipt Date: 20180502
  Transmission Date: 20180711
  Serious: Yes (Life-Threatening, Hospitalization, Other)
  Sender: FDA-Public Use
  Company Number: PHHY2018DE016938

PATIENT
  Age: 78 Year
  Sex: Female

DRUGS (40)
  1. METAMIZOLE [Suspect]
     Active Substance: METAMIZOLE
     Dosage: 1500 MG, UNK
     Route: 048
  2. PIPAMPERONE [Interacting]
     Active Substance: PIPAMPERONE
     Dosage: 80 MG, QD
     Route: 048
     Dates: start: 20140525, end: 20140526
  3. LISINOPRIL. [Interacting]
     Active Substance: LISINOPRIL
     Dosage: 2.5 MG, UNK
     Route: 048
  4. ABILIFY [Suspect]
     Active Substance: ARIPIPRAZOLE
     Dosage: 5 MG, UNK
     Route: 048
     Dates: start: 20140515, end: 20140520
  5. INSULIN [Concomitant]
     Active Substance: INSULIN NOS
     Indication: PRODUCT USED FOR UNKNOWN INDICATION
     Dosage: 60 IU, QD
     Route: 058
  6. METAMIZOLE [Suspect]
     Active Substance: METAMIZOLE
     Dosage: 2000 MG, QD
     Route: 048
     Dates: start: 20140518, end: 20140519
  7. LISINOPRIL. [Suspect]
     Active Substance: LISINOPRIL
     Indication: PRODUCT USED FOR UNKNOWN INDICATION
     Dosage: 5 MG, UNK
     Route: 048
  8. STILNOX [Suspect]
     Active Substance: ZOLPIDEM TARTRATE
     Indication: PRODUCT USED FOR UNKNOWN INDICATION
     Dosage: 10 MG, QD
     Route: 048
     Dates: start: 20140527
  9. OPHTALMIN N [Concomitant]
     Indication: PRODUCT USED FOR UNKNOWN INDICATION
     Dosage: 1 DF, UNK 2X1 SINCE WEEKS
     Route: 065
  10. PANTOPRAZOL [Concomitant]
     Active Substance: PANTOPRAZOLE SODIUM
     Indication: PRODUCT USED FOR UNKNOWN INDICATION
     Dosage: 40 MG, QD
     Route: 048
  11. DIAZEPAM. [Suspect]
     Active Substance: DIAZEPAM
     Dosage: 10 MG, UNK
     Route: 048
     Dates: start: 20140526, end: 20140528
  12. FENTANYL. [Concomitant]
     Active Substance: FENTANYL
     Indication: PRODUCT USED FOR UNKNOWN INDICATION
     Dosage: 75 UG, Q72H
     Route: 062
     Dates: start: 20120101
  13. METAMIZOLE [Suspect]
     Active Substance: METAMIZOLE
     Indication: PRODUCT USED FOR UNKNOWN INDICATION
     Dosage: 500-1000 MG, QD
     Route: 048
     Dates: start: 20140502, end: 20140517
  14. PIPAMPERONE [Interacting]
     Active Substance: PIPAMPERONE
     Dosage: 120 MG, QD
     Route: 048
     Dates: start: 20140527, end: 20140527
  15. METAMIZOLE [Suspect]
     Active Substance: METAMIZOLE
     Dosage: 500 MG, QD
     Route: 048
     Dates: start: 20140522, end: 20140522
  16. PIPAMPERONE [Interacting]
     Active Substance: PIPAMPERONE
     Indication: PRODUCT USED FOR UNKNOWN INDICATION
     Dosage: 20 MG, QD
     Route: 048
     Dates: start: 20140508, end: 20140509
  17. FOLSAEURE [Concomitant]
     Active Substance: FOLIC ACID
     Indication: PRODUCT USED FOR UNKNOWN INDICATION
     Dosage: 5 MG, QD
     Route: 048
     Dates: start: 20140502
  18. CLOPIDOGREL [Concomitant]
     Active Substance: CLOPIDOGREL BISULFATE
     Dosage: 75 MG, QD
     Route: 048
     Dates: start: 2011
  19. METAMIZOLE [Suspect]
     Active Substance: METAMIZOLE
     Dosage: 500 MG, QD
     Route: 048
     Dates: start: 20140526, end: 20140528
  20. METAMIZOLE [Suspect]
     Active Substance: METAMIZOLE
     Dosage: 500 MG, QD
     Route: 048
     Dates: start: 20140530
  21. PIPAMPERONE [Interacting]
     Active Substance: PIPAMPERONE
     Dosage: 40 MG, QD
     Route: 048
     Dates: start: 20140510, end: 20140513
  22. PIPAMPERONE [Interacting]
     Active Substance: PIPAMPERONE
     Dosage: 20 MG, QD
     Route: 048
     Dates: start: 20140528, end: 20140528
  23. SIMVASTATIN. [Concomitant]
     Active Substance: SIMVASTATIN
     Indication: PRODUCT USED FOR UNKNOWN INDICATION
     Dosage: 10 MG, QD
     Route: 048
     Dates: start: 20140201
  24. AMLODIPIN [Concomitant]
     Active Substance: AMLODIPINE BESYLATE
     Indication: PRODUCT USED FOR UNKNOWN INDICATION
     Dosage: 10 MG, QD
     Route: 048
     Dates: start: 20110101
  25. AMLODIPIN [Concomitant]
     Active Substance: AMLODIPINE BESYLATE
     Dosage: 10 MG, QD
     Route: 048
     Dates: start: 2011
  26. OPHTALMIN N [Concomitant]
     Indication: PRODUCT USED FOR UNKNOWN INDICATION
  27. VENLAFAXIN [Concomitant]
     Active Substance: VENLAFAXINE HYDROCHLORIDE
     Indication: PRODUCT USED FOR UNKNOWN INDICATION
     Dosage: 30 MG, UNK
     Route: 048
  28. RESONIUM [Concomitant]
     Active Substance: SODIUM POLYSTYRENE SULFONATE
     Indication: PRODUCT USED FOR UNKNOWN INDICATION
     Dosage: 2 TABLE SPOON
     Route: 048
  29. METAMIZOLE [Suspect]
     Active Substance: METAMIZOLE
     Dosage: 1500 MG, UNK
     Route: 048
     Dates: start: 20170517, end: 20170517
  30. ABILIFY [Suspect]
     Active Substance: ARIPIPRAZOLE
     Indication: PRODUCT USED FOR UNKNOWN INDICATION
     Dosage: 2.5 MG, UNK
     Route: 048
     Dates: start: 20140508, end: 20140514
  31. MACROGOL [Concomitant]
     Active Substance: POLYETHYLENE GLYCOLS
     Indication: PRODUCT USED FOR UNKNOWN INDICATION
     Dosage: 1 DF, QD
     Route: 048
     Dates: start: 20110101
  32. PREDNISOLON [Concomitant]
     Active Substance: PREDNISOLONE
     Indication: PRODUCT USED FOR UNKNOWN INDICATION
     Dosage: 60 MG, UNK
     Route: 048
  33. CLOPIDOGREL [Concomitant]
     Active Substance: CLOPIDOGREL BISULFATE
     Indication: PRODUCT USED FOR UNKNOWN INDICATION
     Dosage: 75 MG, QD
     Route: 048
     Dates: start: 20110101
  34. METAMIZOLE [Suspect]
     Active Substance: METAMIZOLE
     Dosage: 1000 MG, QD
     Route: 048
     Dates: start: 20140520, end: 20140521
  35. METAMIZOLE [Suspect]
     Active Substance: METAMIZOLE
     Dosage: 1000 MG, QD
     Route: 048
     Dates: start: 20140523, end: 20140525
  36. PIPAMPERONE [Interacting]
     Active Substance: PIPAMPERONE
     Dosage: 60 MG, QD
     Route: 048
     Dates: start: 20140515, end: 20140524
  37. MIRTAZAPINE. [Interacting]
     Active Substance: MIRTAZAPINE
     Indication: PRODUCT USED FOR UNKNOWN INDICATION
     Dosage: 30 MG, UNK
     Route: 048
  38. DIAZEPAM. [Suspect]
     Active Substance: DIAZEPAM
     Indication: RESTLESSNESS
     Dosage: 30 MG, QD
     Route: 030
     Dates: start: 20140526, end: 20140528
  39. MACROGOL [Concomitant]
     Active Substance: POLYETHYLENE GLYCOLS
     Dosage: 1 TAB, QD
     Route: 065
     Dates: start: 2011
  40. FORMOTEROL [Concomitant]
     Active Substance: FORMOTEROL
     Indication: PRODUCT USED FOR UNKNOWN INDICATION
     Dosage: 1 DF, QD
     Route: 065
     Dates: start: 20131201

REACTIONS (14)
  - Left ventricular hypertrophy [Unknown]
  - Syncope [Unknown]
  - Hypokalaemia [Unknown]
  - Loss of consciousness [Recovered/Resolved]
  - Drug interaction [Unknown]
  - Facial nerve disorder [Unknown]
  - Myoclonus [Unknown]
  - Dysarthria [Unknown]
  - Restlessness [Unknown]
  - Pancytopenia [Recovered/Resolved]
  - Rash [Unknown]
  - Fall [Unknown]
  - Prescribed underdose [Unknown]
  - Diarrhoea [Unknown]

NARRATIVE: CASE EVENT DATE: 20140519
